FAERS Safety Report 5174424-1 (Version None)
Quarter: 2006Q4

REPORT INFORMATION
  Report Type: 
  Country: None (occurrence: None)
  Receive Date: 20061214
  Receipt Date: 20061201
  Transmission Date: 20070319
  Serious: Yes (Hospitalization)
  Sender: FDA-Public Use
  Company Number: US-AMGEN-US202188

PATIENT
  Sex: Female

DRUGS (1)
  1. ENBREL [Suspect]
     Indication: RHEUMATOID ARTHRITIS
     Route: 058
     Dates: start: 20051101

REACTIONS (5)
  - BLOOD TEST ABNORMAL [None]
  - FOOT FRACTURE [None]
  - FUNGAL INFECTION [None]
  - SKIN LESION [None]
  - TENDON RUPTURE [None]
